FAERS Safety Report 11813824 (Version 3)
Quarter: 2016Q2

REPORT INFORMATION
  Report Type: Spontaneous
  Country: CN (occurrence: CN)
  Receive Date: 20151209
  Receipt Date: 20160526
  Transmission Date: 20160815
  Serious: Yes (Other)
  Sender: FDA-Public Use
  Company Number: CN-GLAXOSMITHKLINE-CN2015GSK174254

PATIENT
  Age: 26 Year
  Sex: Male
  Weight: 55 kg

DRUGS (1)
  1. LAMICTAL [Suspect]
     Active Substance: LAMOTRIGINE
     Indication: INTELLECTUAL DISABILITY
     Dosage: 50 MG, QD
     Route: 048
     Dates: start: 2012

REACTIONS (12)
  - Eye discharge [Not Recovered/Not Resolved]
  - Pruritus genital [Recovering/Resolving]
  - Vomiting [Recovered/Resolved]
  - Muscle twitching [Not Recovered/Not Resolved]
  - Penile haemorrhage [Recovering/Resolving]
  - Chromaturia [Recovered/Resolved]
  - Haematemesis [Recovered/Resolved]
  - Hair growth abnormal [Unknown]
  - Tooth discolouration [Not Recovered/Not Resolved]
  - Ocular hyperaemia [Recovering/Resolving]
  - Weight decreased [Unknown]
  - Product use issue [Unknown]

NARRATIVE: CASE EVENT DATE: 2012
